FAERS Safety Report 13591904 (Version 2)
Quarter: 2017Q4

REPORT INFORMATION
  Report Type: Spontaneous
  Country: US (occurrence: US)
  Receive Date: 20170529
  Receipt Date: 20171229
  Transmission Date: 20180320
  Serious: Yes (Other)
  Sender: FDA-Public Use
  Company Number: US-B.I. PHARMACEUTICALS,INC./RIDGEFIELD-2017-BI-029072

PATIENT
  Age: 57 Year
  Sex: Male
  Weight: 118.84 kg

DRUGS (2)
  1. GLYXAMBI [Suspect]
     Active Substance: EMPAGLIFLOZIN\LINAGLIPTIN
     Indication: TYPE 2 DIABETES MELLITUS
     Dosage: DOSE: 25/5
     Route: 048
     Dates: start: 20170517, end: 20170523
  2. METFORMIN [Concomitant]
     Active Substance: METFORMIN HYDROCHLORIDE
     Indication: DIABETES MELLITUS
     Route: 065
     Dates: start: 200403

REACTIONS (4)
  - Nausea [Not Recovered/Not Resolved]
  - Diabetic ketoacidosis [Recovered/Resolved]
  - Blood ketone body increased [Not Recovered/Not Resolved]
  - Anion gap increased [Not Recovered/Not Resolved]

NARRATIVE: CASE EVENT DATE: 20170517
